FAERS Safety Report 16514417 (Version 3)
Quarter: 2019Q3

REPORT INFORMATION
  Report Type: Report from Study
  Country: US (occurrence: US)
  Receive Date: 20190702
  Receipt Date: 20190725
  Transmission Date: 20191004
  Serious: Yes (Other)
  Sender: FDA-Public Use
  Company Number: US-ROCHE-1419862

PATIENT
  Age: 61 Year
  Sex: Male
  Weight: 101 kg

DRUGS (25)
  1. NUTROPIN AQ [Suspect]
     Active Substance: SOMATROPIN
     Indication: HYPOPITUITARISM
     Route: 058
  2. SYNTHROID [Concomitant]
     Active Substance: LEVOTHYROXINE SODIUM
     Route: 048
  3. FISH OIL [Concomitant]
     Active Substance: FISH OIL
     Route: 048
  4. NUTROPIN AQ [Suspect]
     Active Substance: SOMATROPIN
     Indication: GROWTH HORMONE DEFICIENCY
     Route: 058
  5. DEPO TESTOSTERONE [Concomitant]
     Active Substance: TESTOSTERONE
     Dosage: EVERY 10 DAYS
     Route: 030
  6. SYNTHROID [Concomitant]
     Active Substance: LEVOTHYROXINE SODIUM
     Route: 048
  7. VITAMIN B COMPLEX [Concomitant]
     Active Substance: CYANOCOBALAMIN\DEXPANTHENOL\NIACINAMIDE\PYRIDOXINE HYDROCHLORIDE\RIBOFLAVIN 5^-PHOSPHATE SODIUM\THIAMINE HYDROCHLORIDE\VITAMIN B COMPLEX
     Route: 048
  8. GABAPENTIN. [Concomitant]
     Active Substance: GABAPENTIN
     Route: 048
  9. SIMVASTATIN. [Concomitant]
     Active Substance: SIMVASTATIN
     Route: 048
  10. GALANTAMINE. [Concomitant]
     Active Substance: GALANTAMINE
     Route: 048
  11. ATORVASTATIN [Concomitant]
     Active Substance: ATORVASTATIN
     Route: 048
  12. NUTROPIN AQ [Suspect]
     Active Substance: SOMATROPIN
     Indication: HYPOTHYROIDISM
     Route: 058
  13. ARICEPT [Suspect]
     Active Substance: DONEPEZIL HYDROCHLORIDE
     Indication: PRODUCT USED FOR UNKNOWN INDICATION
     Route: 048
     Dates: start: 201209
  14. FISH OIL [Concomitant]
     Active Substance: FISH OIL
     Route: 048
  15. CITALOPRAM [Concomitant]
     Active Substance: CITALOPRAM HYDROBROMIDE
     Route: 048
  16. NUTROPIN AQ [Suspect]
     Active Substance: SOMATROPIN
     Indication: HYPOPITUITARISM
  17. DEPO TESTOSTERONE [Concomitant]
     Active Substance: TESTOSTERONE
     Route: 030
  18. WELLBUTRIN [Concomitant]
     Active Substance: BUPROPION HYDROCHLORIDE
     Route: 048
  19. UBIDECARENONE [Concomitant]
     Active Substance: UBIDECARENONE
     Route: 048
  20. METFORMIN [Concomitant]
     Active Substance: METFORMIN HYDROCHLORIDE
  21. CYANOCOBALAMIN. [Concomitant]
     Active Substance: CYANOCOBALAMIN
     Route: 048
  22. NUTROPIN AQ [Suspect]
     Active Substance: SOMATROPIN
     Indication: HYPOGONADISM MALE
     Route: 058
     Dates: start: 20120525
  23. CYTOMEL [Concomitant]
     Active Substance: LIOTHYRONINE SODIUM
     Route: 048
  24. GALANTAMINE. [Concomitant]
     Active Substance: GALANTAMINE
     Route: 048
  25. ASPIRIN [ACETYLSALICYLIC ACID] [Concomitant]
     Active Substance: ASPIRIN
     Route: 048

REACTIONS (27)
  - Palpitations [Unknown]
  - Fatigue [Unknown]
  - Insulin-like growth factor increased [Unknown]
  - Depression [Unknown]
  - Neoplasm [Recovered/Resolved]
  - Hot flush [Unknown]
  - Carpal tunnel syndrome [Unknown]
  - Vitamin D decreased [Unknown]
  - Glycosylated haemoglobin increased [Unknown]
  - Nausea [Unknown]
  - Hyperhidrosis [Unknown]
  - Asthenia [Unknown]
  - Vomiting [Unknown]
  - Arthralgia [Unknown]
  - Memory impairment [Unknown]
  - Joint swelling [Unknown]
  - Pain [Unknown]
  - Dizziness [Unknown]
  - Peripheral swelling [Unknown]
  - Visual field defect [Unknown]
  - Blood testosterone decreased [Unknown]
  - Urinary retention [Unknown]
  - Pain in extremity [Unknown]
  - Platelet count decreased [Unknown]
  - Weight increased [Unknown]
  - Muscular weakness [Unknown]
  - Constipation [Unknown]

NARRATIVE: CASE EVENT DATE: 20160504
